FAERS Safety Report 25707468 (Version 1)
Quarter: 2025Q3

REPORT INFORMATION
  Report Type: Spontaneous
  Country: PA (occurrence: PA)
  Receive Date: 20250820
  Receipt Date: 20250820
  Transmission Date: 20251021
  Serious: Yes (Life-Threatening)
  Sender: NOVARTIS
  Company Number: PA-SANDOZ-SDZ2023PA024790

PATIENT
  Age: 34 Year
  Sex: Female
  Weight: 88 kg

DRUGS (5)
  1. METHOTREXATE [Suspect]
     Active Substance: METHOTREXATE
     Indication: Psoriasis
     Route: 048
  2. METHOTREXATE [Suspect]
     Active Substance: METHOTREXATE
     Route: 048
     Dates: start: 202101
  3. METHOTREXATE [Suspect]
     Active Substance: METHOTREXATE
     Route: 065
  4. SECUKINUMAB [Suspect]
     Active Substance: SECUKINUMAB
     Indication: Psoriatic arthropathy
     Dosage: 300 MG, QMO (BENEATH THE SKIN, USUALLY VIA INJECTION)
     Route: 058
     Dates: start: 20200807, end: 20211201
  5. SECUKINUMAB [Suspect]
     Active Substance: SECUKINUMAB
     Indication: Psoriasis
     Dosage: 300 MG, QMO
     Route: 058
     Dates: start: 20230324

REACTIONS (20)
  - Psoriasis [Recovering/Resolving]
  - Rash [Unknown]
  - Condition aggravated [Recovering/Resolving]
  - Burning sensation [Unknown]
  - Gait inability [Unknown]
  - Injury [Unknown]
  - Skin haemorrhage [Unknown]
  - Insomnia [Recovering/Resolving]
  - Musculoskeletal stiffness [Recovering/Resolving]
  - Erythema [Not Recovered/Not Resolved]
  - Pain [Unknown]
  - Skin plaque [Unknown]
  - Skin disorder [Unknown]
  - Arthritis [Unknown]
  - Arthralgia [Unknown]
  - Stress [Recovering/Resolving]
  - Malaise [Recovering/Resolving]
  - Nausea [Recovering/Resolving]
  - Vomiting [Recovering/Resolving]
  - Product availability issue [Unknown]

NARRATIVE: CASE EVENT DATE: 20210318
